FAERS Safety Report 21474022 (Version 2)
Quarter: 2022Q4

REPORT INFORMATION
  Report Type: Report from Study
  Country: US (occurrence: US)
  Receive Date: 20221018
  Receipt Date: 20221115
  Transmission Date: 20230112
  Serious: No
  Sender: FDA-Public Use
  Company Number: US-ABBVIE-4139283

PATIENT
  Sex: Female

DRUGS (1)
  1. IMBRUVICA [Suspect]
     Active Substance: IBRUTINIB
     Indication: Chronic lymphocytic leukaemia
     Route: 048
     Dates: start: 202012

REACTIONS (8)
  - Abdominal pain lower [Unknown]
  - Blood uric acid normal [Unknown]
  - White blood cell count abnormal [Unknown]
  - Gastrointestinal pain [Unknown]
  - Fatigue [Unknown]
  - Back pain [Unknown]
  - Stress [Unknown]
  - Arthralgia [Unknown]
